FAERS Safety Report 23378969 (Version 1)
Quarter: 2024Q1

REPORT INFORMATION
  Report Type: Spontaneous
  Country: US (occurrence: None)
  Receive Date: 20240107
  Receipt Date: 20240107
  Transmission Date: 20240410
  Serious: Yes (Disabling)
  Sender: FDA-Public Use
  Company Number: None

PATIENT
  Age: 30 Year
  Sex: Female
  Weight: 54 kg

DRUGS (4)
  1. CITALOPRAM HYDROBROMIDE [Suspect]
     Active Substance: CITALOPRAM HYDROBROMIDE
     Indication: Depression
     Dosage: OTHER QUANTITY : 30 TABLET(S);?FREQUENCY : DAILY;?
     Route: 048
     Dates: start: 20160715, end: 20231127
  2. LEVOTHYROXINE [Concomitant]
     Active Substance: LEVOTHYROXINE
  3. VITAMIN B [Concomitant]
     Active Substance: VITAMIN B
  4. ibprophen [Concomitant]

REACTIONS (5)
  - Hypoaesthesia [None]
  - Emotional disorder [None]
  - Cognitive disorder [None]
  - Visual impairment [None]
  - Insomnia [None]

NARRATIVE: CASE EVENT DATE: 20231204
